FAERS Safety Report 7587222-6 (Version None)
Quarter: 2011Q3

REPORT INFORMATION
  Report Type: 
  Country: None (occurrence: None)
  Receive Date: 20110701
  Receipt Date: 20110630
  Transmission Date: 20111222
  Serious: Yes (Death, Hospitalization, Other)
  Sender: FDA-Public Use
  Company Number: HU-ABBOTT-11P-076-0835541-00

PATIENT
  Sex: Female
  Weight: 56 kg

DRUGS (3)
  1. METHYLPREDNISOLONE [Concomitant]
     Indication: RHEUMATOID ARTHRITIS
     Route: 048
     Dates: start: 20030501
  2. HUMIRA [Suspect]
     Indication: RHEUMATOID ARTHRITIS
     Route: 058
     Dates: start: 20080605, end: 20100901
  3. METHOTREXATE [Concomitant]
     Indication: RHEUMATOID ARTHRITIS
     Route: 048
     Dates: start: 20030501

REACTIONS (2)
  - WHITE BLOOD CELL COUNT INCREASED [None]
  - LUNG NEOPLASM [None]
